FAERS Safety Report 25214951 (Version 2)
Quarter: 2025Q2

REPORT INFORMATION
  Report Type: Spontaneous
  Country: JP (occurrence: JP)
  Receive Date: 20250418
  Receipt Date: 20250422
  Transmission Date: 20250717
  Serious: Yes (Life-Threatening, Hospitalization, Other)
  Sender: PFIZER
  Company Number: JP-PFIZER INC-PV202500044093

PATIENT
  Age: 73 Year
  Sex: Male

DRUGS (10)
  1. METHYLPREDNISOLONE SODIUM SUCCINATE [Suspect]
     Active Substance: METHYLPREDNISOLONE SODIUM SUCCINATE
     Indication: COVID-19
     Dosage: 1000 MG, DAILY,FOR THREE CONSECUTIVE DAYS
     Route: 042
  2. PREDNISOLONE [Suspect]
     Active Substance: PREDNISOLONE
     Indication: COVID-19
     Dosage: 60 MG, DAILY, WITH WEEKLY DOSE REDUCTIONS OF 10 MG/DAY/TAPERED BY 5 MG/DAY EVERY TWO WEEKS.
     Route: 048
  3. PREDNISOLONE [Suspect]
     Active Substance: PREDNISOLONE
     Dosage: 50 MG, DAILY, WITH WEEKLY DOSE REDUCTIONS OF 10 MG/DAY/TAPERED BY 5 MG/DAY EVERY TWO WEEKS.
     Route: 048
  4. PREDNISOLONE [Suspect]
     Active Substance: PREDNISOLONE
     Dosage: 40 MG, DAILY,WITH WEEKLY DOSE REDUCTIONS OF 10 MG/DAY/TAPERED BY 5 MG/DAY EVERY TWO WEEKS.
     Route: 048
  5. PREDNISOLONE [Suspect]
     Active Substance: PREDNISOLONE
     Dosage: 30 MG, DAILY,WITH WEEKLY DOSE REDUCTIONS OF 10 MG/DAY/TAPERED BY 5 MG/DAY EVERY TWO WEEKS.
     Route: 048
  6. PREDNISOLONE [Suspect]
     Active Substance: PREDNISOLONE
     Dosage: 20 MG, DAILY,WITH WEEKLY DOSE REDUCTIONS OF 10 MG/DAY/TAPERED BY 5 MG/DAY EVERY TWO WEEKS.
     Route: 048
  7. PREDNISOLONE [Suspect]
     Active Substance: PREDNISOLONE
     Dosage: 10 MG, DAILY,WITH WEEKLY DOSE REDUCTIONS OF 10 MG/DAY/TAPERED BY 5 MG/DAY EVERY TWO WEEKS.
     Route: 048
  8. PREDNISOLONE [Suspect]
     Active Substance: PREDNISOLONE
     Dosage: 20 MG, DAILY
     Route: 048
  9. REMDESIVIR [Suspect]
     Active Substance: REMDESIVIR
     Indication: COVID-19
  10. TOCILIZUMAB [Suspect]
     Active Substance: TOCILIZUMAB
     Indication: COVID-19

REACTIONS (4)
  - Varicella zoster pneumonia [Recovered/Resolved]
  - Disseminated varicella zoster virus infection [Recovered/Resolved]
  - Herpes zoster reactivation [Recovered/Resolved]
  - Off label use [Unknown]
